FAERS Safety Report 15165728 (Version 1)
Quarter: 2018Q3

REPORT INFORMATION
  Report Type: Spontaneous
  Country: US (occurrence: US)
  Receive Date: 20180621
  Receipt Date: 20180621
  Transmission Date: 20181010
  Serious: Yes (Hospitalization)
  Sender: FDA-Public Use
  Company Number: None

PATIENT
  Sex: Female

DRUGS (6)
  1. VITAMIN C [Concomitant]
     Active Substance: ASCORBIC ACID
  2. HUMIRA [Suspect]
     Active Substance: ADALIMUMAB
     Indication: CROHN^S DISEASE
     Dosage: ?          OTHER FREQUENCY:BIWEEKLY;?
     Route: 058
     Dates: start: 20160629
  3. FISH OIL [Concomitant]
     Active Substance: FISH OIL
  4. LINSINOPRIL [Concomitant]
     Active Substance: LISINOPRIL
  5. CALCIUM [Concomitant]
     Active Substance: CALCIUM
  6. CENTRIUM [Concomitant]

REACTIONS (2)
  - Drug dose omission [None]
  - Kidney infection [None]
